FAERS Safety Report 25531166 (Version 2)
Quarter: 2025Q3

REPORT INFORMATION
  Report Type: Report from Study
  Country: EU (occurrence: EU)
  Receive Date: 20250708
  Receipt Date: 20250810
  Transmission Date: 20251021
  Serious: Yes (Hospitalization, Other)
  Sender: ALEXION PHARMACEUTICALS
  Company Number: EU-ASTRAZENECA-202506EEA004017IT

PATIENT
  Sex: Female
  Weight: 70 kg

DRUGS (1)
  1. DURVALUMAB [Suspect]
     Active Substance: DURVALUMAB
     Indication: Small cell lung cancer limited stage

REACTIONS (6)
  - Pneumonia [Not Recovered/Not Resolved]
  - Faecaloma [Unknown]
  - Nodule [Unknown]
  - Lymphadenopathy mediastinal [Unknown]
  - Adrenomegaly [Unknown]
  - Cholelithiasis [Unknown]

NARRATIVE: CASE EVENT DATE: 20250603
